FAERS Safety Report 17562062 (Version 1)
Quarter: 2020Q1

REPORT INFORMATION
  Report Type: Spontaneous
  Country: DE (occurrence: DE)
  Receive Date: 20200319
  Receipt Date: 20200319
  Transmission Date: 20200409
  Serious: Yes (Death)
  Sender: FDA-Public Use
  Company Number: DE-PFIZER INC-2020117107

PATIENT
  Age: 61 Year
  Sex: Male

DRUGS (1)
  1. AXITINIB [Suspect]
     Active Substance: AXITINIB
     Indication: GLIOBLASTOMA
     Dosage: UNK, CYCLIC

REACTIONS (3)
  - Off label use [Unknown]
  - Neurological decompensation [Fatal]
  - Product use in unapproved indication [Unknown]
